FAERS Safety Report 5121134-2 (Version None)
Quarter: 2006Q4

REPORT INFORMATION
  Report Type: 
  Country: None (occurrence: None)
  Receive Date: 20061002
  Receipt Date: 20060920
  Transmission Date: 20070319
  Serious: Yes (Other)
  Sender: FDA-Public Use
  Company Number: 2006114220

PATIENT
  Age: 31 Year
  Sex: Female

DRUGS (6)
  1. ZELDOX [Suspect]
     Indication: SELF ESTEEM DECREASED
     Dosage: 80 MG, ORAL
     Route: 048
  2. OPIPRAMOL (OPIPRAMOL) [Suspect]
  3. RITALIN [Concomitant]
  4. VENLAFAXINE HCL [Concomitant]
  5. NOVOTHYRAL             (LEVOTHYROXINE SODIUM, LIOTHYRONINE SODIUM) [Concomitant]
  6. ORAL CONTRACEPTIVE NOS [Concomitant]

REACTIONS (8)
  - DIARRHOEA [None]
  - HYPERHIDROSIS [None]
  - LACTATION DISORDER [None]
  - LIBIDO DECREASED [None]
  - MEMORY IMPAIRMENT [None]
  - MULTIPLE DRUG OVERDOSE INTENTIONAL [None]
  - ORGASM ABNORMAL [None]
  - SUICIDE ATTEMPT [None]
